FAERS Safety Report 8318553-X (Version None)
Quarter: 2012Q2

REPORT INFORMATION
  Report Type: 
  Country: None (occurrence: None)
  Receive Date: 20120427
  Receipt Date: 20120418
  Transmission Date: 20120825
  Serious: Yes (Hospitalization)
  Sender: FDA-Public Use
  Company Number: JP-ELI_LILLY_AND_COMPANY-JP201101004329

PATIENT
  Age: 48 Year
  Sex: Male
  Weight: 59.6 kg

DRUGS (1)
  1. CIALIS [Suspect]
     Dosage: UNK
     Route: 048
     Dates: start: 20110110, end: 20110110

REACTIONS (4)
  - COUNTERFEIT DRUG ADMINISTERED [None]
  - HYPOGLYCAEMIA [None]
  - DRUG ERUPTION [None]
  - DRUG INEFFECTIVE [None]
